FAERS Safety Report 6892718-6 (Version None)
Quarter: 2010Q3

REPORT INFORMATION
  Report Type: 
  Country: None (occurrence: None)
  Receive Date: 20100731
  Receipt Date: 20080825
  Transmission Date: 20110219
  Serious: No
  Sender: FDA-Public Use
  Company Number: US-PFIZER INC-2008071151

PATIENT
  Sex: Male
  Weight: 220 kg

DRUGS (5)
  1. NORVASC [Suspect]
     Indication: HYPERTENSION
  2. CHANTIX [Suspect]
     Indication: SMOKING CESSATION THERAPY
     Dates: start: 20070101
  3. TRILEPTAL [Concomitant]
  4. PRAVASTATIN [Concomitant]
  5. HYDROCHLOROTHIAZIDE [Concomitant]

REACTIONS (3)
  - DIZZINESS [None]
  - GASTROINTESTINAL PAIN [None]
  - RESTRICTIVE PULMONARY DISEASE [None]
